FAERS Safety Report 25585012 (Version 1)
Quarter: 2025Q3

REPORT INFORMATION
  Report Type: Spontaneous
  Country: US (occurrence: None)
  Receive Date: 20250721
  Receipt Date: 20250721
  Transmission Date: 20251021
  Serious: Yes (Other)
  Sender: SUPERNUS PHARMACEUTICALS, INC.
  Company Number: US-SUPERNUS Pharmaceuticals, Inc.-SUP202507-002506

PATIENT
  Age: 3 Year
  Sex: Male

DRUGS (3)
  1. OXCARBAZEPINE [Suspect]
     Active Substance: OXCARBAZEPINE
     Indication: Partial seizures
  2. CLOBAZAM [Concomitant]
     Active Substance: CLOBAZAM
  3. LEVETIRACETAM [Concomitant]
     Active Substance: LEVETIRACETAM

REACTIONS (4)
  - CSWS syndrome [Recovered/Resolved]
  - Condition aggravated [Recovered/Resolved]
  - Left-handedness [Recovered/Resolved]
  - Product use issue [Unknown]
